FAERS Safety Report 11965196 (Version 1)
Quarter: 2016Q1

REPORT INFORMATION
  Report Type: Spontaneous
  Country: US (occurrence: None)
  Receive Date: 20160122
  Receipt Date: 20160122
  Transmission Date: 20160526
  Serious: No
  Sender: FDA-Public Use
  Company Number: None

PATIENT
  Age: 87 Year
  Sex: Female
  Weight: 60.78 kg

DRUGS (14)
  1. PREMARIN [Concomitant]
     Active Substance: ESTROGENS, CONJUGATED
  2. CALCIUM [Concomitant]
     Active Substance: CALCIUM
  3. VITAMIN D [Concomitant]
     Active Substance: CHOLECALCIFEROL
  4. GLUCOSAMINE SULFATE [Concomitant]
     Active Substance: GLUCOSAMINE SULFATE
  5. BABY ASPIRIN [Concomitant]
     Active Substance: ASPIRIN
  6. OCUVITE [Concomitant]
     Active Substance: VITAMINS
  7. ZOCOR [Concomitant]
     Active Substance: SIMVASTATIN
  8. ATENOLOL. [Concomitant]
     Active Substance: ATENOLOL
  9. VITAMIN E [Concomitant]
     Active Substance: .ALPHA.-TOCOPHEROL
  10. FAMOTIDINE. [Concomitant]
     Active Substance: FAMOTIDINE
  11. COD LIVER OIL [Concomitant]
     Active Substance: COD LIVER OIL
  12. METRONIDIZOLE [Concomitant]
  13. ALENDRONATE SODIUM 70MG TAB ACTA [Suspect]
     Active Substance: ALENDRONATE SODIUM
     Indication: OSTEOPOROSIS
     Route: 048
     Dates: start: 20151102, end: 20151102
  14. VITAMIN B12 [Concomitant]
     Active Substance: CYANOCOBALAMIN

REACTIONS (5)
  - Lip disorder [None]
  - Dry mouth [None]
  - Oral pain [None]
  - Hypoaesthesia oral [None]
  - Cheilitis [None]

NARRATIVE: CASE EVENT DATE: 20151103
